FAERS Safety Report 6891767-1 (Version None)
Quarter: 2010Q3

REPORT INFORMATION
  Report Type: 
  Country: None (occurrence: None)
  Receive Date: 20100731
  Receipt Date: 20071119
  Transmission Date: 20110219
  Serious: Yes (Other)
  Sender: FDA-Public Use
  Company Number: US-PFIZER INC-2007079627

PATIENT
  Sex: Female
  Weight: 95.454 kg

DRUGS (14)
  1. NEURONTIN [Suspect]
     Indication: NEURALGIA
     Dates: start: 19980101
  2. GABAPENTIN [Suspect]
     Indication: NEURALGIA
  3. FLEXERIL [Concomitant]
  4. AMBIEN [Concomitant]
  5. TALWIN [Concomitant]
  6. TRICOR [Concomitant]
  7. PREMARIN [Concomitant]
  8. ATENOLOL [Concomitant]
  9. FIORICET W/ CODEINE [Concomitant]
  10. DARVOCET [Concomitant]
  11. PROMETHAZINE [Concomitant]
  12. MEDROL [Concomitant]
  13. LORAZEPAM [Concomitant]
  14. ANALGESIC BALM [Concomitant]

REACTIONS (7)
  - BLEPHAROSPASM [None]
  - COORDINATION ABNORMAL [None]
  - DRY MOUTH [None]
  - MEMORY IMPAIRMENT [None]
  - MUSCLE SPASMS [None]
  - TOOTH EROSION [None]
  - VISION BLURRED [None]
